FAERS Safety Report 9381378 (Version 3)
Quarter: 2013Q4

REPORT INFORMATION
  Report Type: Spontaneous
  Country: NO (occurrence: NO)
  Receive Date: 20130703
  Receipt Date: 20131101
  Transmission Date: 20140711
  Serious: Yes (Other)
  Sender: FDA-Public Use
  Company Number: NO-MYLANLABS-2013S1014533

PATIENT
  Sex: 0
  Weight: 4.08 kg

DRUGS (4)
  1. REMIFENTANIL [Suspect]
     Route: 064
  2. SEVOFLURANE [Suspect]
     Route: 064
  3. THIOPENTAL SODIUM [Suspect]
     Route: 064
  4. SUCCINYLCHOLINE [Suspect]
     Route: 064

REACTIONS (3)
  - Foetal exposure during pregnancy [Unknown]
  - Acidosis [Unknown]
  - Neonatal respiratory depression [Unknown]
